FAERS Safety Report 9163824 (Version 1)
Quarter: 2013Q1

REPORT INFORMATION
  Report Type: Spontaneous
  Country: IT (occurrence: IT)
  Receive Date: 20130314
  Receipt Date: 20130314
  Transmission Date: 20140127
  Serious: Yes (Other)
  Sender: FDA-Public Use
  Company Number: IT-JNJFOC-20130302089

PATIENT
  Age: 44 Year
  Sex: Male

DRUGS (4)
  1. SERENASE [Suspect]
     Indication: DRUG ABUSE
     Route: 048
     Dates: start: 20130203, end: 20130203
  2. CLOTIAZEPAM [Suspect]
     Indication: DRUG ABUSE
     Route: 048
     Dates: start: 20130203, end: 20130203
  3. SODIUM GLYCEROPHOSPHATE ANHYDROUS [Suspect]
     Indication: DRUG ABUSE
     Route: 048
     Dates: start: 20130203, end: 20130203
  4. ESTAZOLAM [Suspect]
     Indication: DRUG ABUSE
     Route: 048
     Dates: start: 20130203, end: 20130203

REACTIONS (2)
  - Asthenia [Recovered/Resolved]
  - Substance abuse [Recovered/Resolved]
